FAERS Safety Report 20714540 (Version 2)
Quarter: 2022Q2

REPORT INFORMATION
  Report Type: Spontaneous
  Country: BR (occurrence: BR)
  Receive Date: 20220415
  Receipt Date: 20220527
  Transmission Date: 20220720
  Serious: Yes (Other)
  Sender: FDA-Public Use
  Company Number: BR-NOVARTISPH-NVSC2022BR085248

PATIENT
  Sex: Female

DRUGS (1)
  1. AMOXICILLIN AND CLAVULANATE POTASSIUM [Suspect]
     Active Substance: AMOXICILLIN\CLAVULANATE POTASSIUM
     Indication: Tonsillitis
     Dosage: UNK UNK, Q8H (500+125 MG, EVERY 8 HOURS)
     Route: 065

REACTIONS (4)
  - Haemorrhage [Unknown]
  - Vaginal discharge [Unknown]
  - Vulvovaginal burning sensation [Unknown]
  - Genital rash [Unknown]
